FAERS Safety Report 10332637 (Version 2)
Quarter: 2015Q4

REPORT INFORMATION
  Report Type: Spontaneous
  Country: US (occurrence: US)
  Receive Date: 20140722
  Receipt Date: 20151030
  Transmission Date: 20160304
  Serious: No
  Sender: FDA-Public Use
  Company Number: US-ASTRAZENECA-2013SE82727

PATIENT
  Age: 57 Year
  Sex: Female
  Weight: 92.1 kg

DRUGS (27)
  1. SEROQUEL [Suspect]
     Active Substance: QUETIAPINE FUMARATE
     Indication: PANIC ATTACK
     Route: 048
     Dates: start: 2015
  2. ZOLPIDEM [Concomitant]
     Active Substance: ZOLPIDEM\ZOLPIDEM TARTRATE
     Indication: INSOMNIA
     Dosage: 10 MG NR
     Dates: start: 2008
  3. SEROQUEL [Suspect]
     Active Substance: QUETIAPINE FUMARATE
     Indication: SOCIAL PHOBIA
     Route: 048
     Dates: start: 20131106
  4. ANAFRANIL/CLOMIPRAMINE [Concomitant]
     Indication: SLEEP DISORDER
     Dosage: TWICE DAILY
     Dates: start: 2005
  5. PREMARIN [Concomitant]
     Active Substance: ESTROGENS, CONJUGATED
     Indication: HYSTERECTOMY
     Route: 065
     Dates: start: 1957
  6. SEROQUEL [Suspect]
     Active Substance: QUETIAPINE FUMARATE
     Indication: MAJOR DEPRESSION
     Route: 048
     Dates: start: 20131106
  7. SEROQUEL [Suspect]
     Active Substance: QUETIAPINE FUMARATE
     Indication: MAJOR DEPRESSION
     Route: 048
     Dates: start: 2015
  8. ANAFRANIL/CLOMIPRAMINE [Concomitant]
     Indication: OBSESSIVE-COMPULSIVE DISORDER
     Dosage: TWICE DAILY
     Dates: start: 2005
  9. VITAMIN D3 [Concomitant]
     Active Substance: CHOLECALCIFEROL
     Indication: VITAMIN D DEFICIENCY
     Route: 065
     Dates: start: 2002
  10. PROZAC [Concomitant]
     Active Substance: FLUOXETINE HYDROCHLORIDE
     Indication: MAJOR DEPRESSION
     Route: 065
     Dates: start: 1980
  11. SYNTHROID/LEVOTHYROXINE [Concomitant]
     Indication: HYPOTHYROIDISM
  12. LOSARTAN. [Concomitant]
     Active Substance: LOSARTAN
     Indication: HYPERTENSION
     Dates: start: 1998
  13. B12 SHOT [Concomitant]
     Indication: VITAMIN B12 DEFICIENCY
     Dosage: 1 CC MONTH
     Dates: start: 2002
  14. CLONAPIN [Concomitant]
     Active Substance: CLONAZEPAM
     Indication: ANXIETY
     Dates: start: 2006
  15. CLONAPIN [Concomitant]
     Active Substance: CLONAZEPAM
     Indication: ANXIETY
     Dates: start: 2010
  16. SEROQUEL [Suspect]
     Active Substance: QUETIAPINE FUMARATE
     Indication: SOCIAL PHOBIA
     Route: 048
     Dates: start: 20131106
  17. SEROQUEL [Suspect]
     Active Substance: QUETIAPINE FUMARATE
     Indication: PANIC ATTACK
     Route: 048
     Dates: start: 20131106
  18. TOPAMAX/TOPIRAMATE [Concomitant]
     Indication: MIGRAINE PROPHYLAXIS
     Dates: start: 2012
  19. B12 SHOT [Concomitant]
     Indication: ANAEMIA VITAMIN B12 DEFICIENCY
     Dosage: 1 CC MONTH
     Dates: start: 2002
  20. IRON [Concomitant]
     Active Substance: IRON
     Indication: IRON DEFICIENCY
     Dosage: MONTHLY
     Route: 042
     Dates: start: 2002
  21. SEROQUEL [Suspect]
     Active Substance: QUETIAPINE FUMARATE
     Indication: SOCIAL PHOBIA
     Route: 048
     Dates: start: 2015
  22. SEROQUEL [Suspect]
     Active Substance: QUETIAPINE FUMARATE
     Indication: SOCIAL PHOBIA
     Route: 048
     Dates: start: 2015
  23. VITAMIN D3 [Concomitant]
     Active Substance: CHOLECALCIFEROL
     Indication: BLOOD PARATHYROID HORMONE ABNORMAL
     Route: 065
     Dates: start: 2002
  24. SPIRONOLACTONE. [Concomitant]
     Active Substance: SPIRONOLACTONE
     Indication: ALOPECIA
     Dates: start: 2013
  25. TRAMADOL. [Concomitant]
     Active Substance: TRAMADOL
     Indication: INTERVERTEBRAL DISC DEGENERATION
     Dosage: 50 MG QID PRN
  26. IRON [Concomitant]
     Active Substance: IRON
     Indication: IRON DEFICIENCY
     Dosage: MONTHLY
     Route: 042
     Dates: start: 2002
  27. HCTZ [Concomitant]
     Active Substance: HYDROCHLOROTHIAZIDE
     Indication: HYPERTENSION
     Dates: start: 1998

REACTIONS (14)
  - Hunger [Not Recovered/Not Resolved]
  - Weight decreased [Unknown]
  - Drug resistance [Unknown]
  - Chest pain [Unknown]
  - Cyanosis [Recovering/Resolving]
  - Feeling abnormal [Not Recovered/Not Resolved]
  - Feeling cold [Recovering/Resolving]
  - Dry mouth [Not Recovered/Not Resolved]
  - Nausea [Not Recovered/Not Resolved]
  - Drug dose omission [Unknown]
  - Somnolence [Not Recovered/Not Resolved]
  - Emotional disorder [Unknown]
  - Off label use [Not Recovered/Not Resolved]
  - Dizziness [Not Recovered/Not Resolved]

NARRATIVE: CASE EVENT DATE: 201311
